FAERS Safety Report 24041250 (Version 1)
Quarter: 2024Q3

REPORT INFORMATION
  Report Type: Spontaneous
  Country: US (occurrence: US)
  Receive Date: 20240702
  Receipt Date: 20240702
  Transmission Date: 20241017
  Serious: No
  Sender: BIOGEN
  Company Number: US-BIOGEN-2024BI01255156

PATIENT
  Sex: Male

DRUGS (2)
  1. VUMERITY [Suspect]
     Active Substance: DIROXIMEL FUMARATE
     Indication: Multiple sclerosis
     Dosage: 231MG CAPSULE BY MOUTH TWICE DAILY FOR 7 DAYS, (05-MAR-2024), THEN TAKE (2)231MG CAPSULE BY MOUTH...
     Route: 050
     Dates: start: 20240305, end: 20240311
  2. VUMERITY [Suspect]
     Active Substance: DIROXIMEL FUMARATE
     Dosage: 231MG CAPSULE BY MOUTH TWICE DAILY FOR 7 DAYS, (05-MAR-2024), THEN TAKE (2)231MG CAPSULE BY MOUTH...
     Route: 050
     Dates: start: 20240312, end: 202405

REACTIONS (7)
  - Product dose omission in error [Unknown]
  - Drug ineffective [Unknown]
  - Hypoaesthesia [Unknown]
  - Paraesthesia [Unknown]
  - Magnetic resonance imaging abnormal [Unknown]
  - Feeling hot [Unknown]
  - Erythema [Recovered/Resolved]

NARRATIVE: CASE EVENT DATE: 20240101
